FAERS Safety Report 4770846-9 (Version None)
Quarter: 2005Q3

REPORT INFORMATION
  Report Type: 
  Country: None (occurrence: None)
  Receive Date: 20050915
  Receipt Date: 20050912
  Transmission Date: 20060218
  Serious: Yes (Hospitalization)
  Sender: FDA-Public Use
  Company Number: FR-GLAXOSMITHKLINE-B0393710A

PATIENT
  Age: 60 Year
  Sex: Female

DRUGS (7)
  1. AUGMENTIN [Suspect]
     Indication: BRONCHITIS
     Dosage: 1G SINGLE DOSE
     Route: 048
     Dates: start: 20050829, end: 20050829
  2. LIPANTHYL [Concomitant]
     Route: 065
  3. EUPANTOL [Concomitant]
     Route: 065
  4. DERINOX [Concomitant]
     Route: 065
  5. BRONCHOKOD [Concomitant]
     Route: 065
  6. ACTISOUFRE [Concomitant]
     Route: 065
  7. BIOCALYPTOL [Concomitant]
     Route: 065

REACTIONS (4)
  - ANGIONEUROTIC OEDEMA [None]
  - DYSPNOEA [None]
  - LOCALISED OEDEMA [None]
  - RASH ERYTHEMATOUS [None]
